FAERS Safety Report 19267047 (Version 1)
Quarter: 2021Q2

REPORT INFORMATION
  Report Type: Spontaneous
  Country: US (occurrence: US)
  Receive Date: 20210517
  Receipt Date: 20210517
  Transmission Date: 20210717
  Serious: Yes (Death, Other)
  Sender: FDA-Public Use
  Company Number: US-SA-2021SA161012

PATIENT
  Age: 50 Year
  Sex: Female

DRUGS (2)
  1. REMDESIVIR. [Concomitant]
     Active Substance: REMDESIVIR
     Indication: FIBRIN D DIMER INCREASED
  2. ENOXAPARIN SODIUM. [Suspect]
     Active Substance: ENOXAPARIN SODIUM
     Indication: FIBRIN D DIMER INCREASED
     Dosage: UNK

REACTIONS (15)
  - Disseminated intravascular coagulation [Fatal]
  - Pulmonary embolism [Fatal]
  - Hypotension [Fatal]
  - Drug ineffective [Fatal]
  - Cardiac arrest [Fatal]
  - Troponin decreased [Fatal]
  - Electrocardiogram ST segment elevation [Fatal]
  - Haemorrhage [Fatal]
  - Acute myocardial infarction [Fatal]
  - Cardiac ventricular thrombosis [Fatal]
  - Right ventricular dysfunction [Fatal]
  - Atrial thrombosis [Fatal]
  - Intracardiac thrombus [Fatal]
  - Coronary artery occlusion [Fatal]
  - Cardiac aneurysm [Fatal]
